FAERS Safety Report 7481242-8 (Version None)
Quarter: 2011Q2

REPORT INFORMATION
  Report Type: 
  Country: None (occurrence: None)
  Receive Date: 20110516
  Receipt Date: 20110502
  Transmission Date: 20111010
  Serious: Yes (Other)
  Sender: FDA-Public Use
  Company Number: PHHY2011US11758

PATIENT
  Sex: Female

DRUGS (6)
  1. VITAMIN B NOS [Concomitant]
  2. VITAMINS [Concomitant]
  3. ATENOLOL [Concomitant]
     Dosage: 25 MG, UNK
     Route: 048
  4. FEMARA [Suspect]
     Dosage: 2.5 MG, UNK
     Route: 048
     Dates: start: 20110126
  5. ASPIRIN [Concomitant]
  6. AMBIEN [Concomitant]
     Dosage: 10 MG, UNK

REACTIONS (12)
  - JOINT LOCK [None]
  - DYSPNOEA [None]
  - ARTHRALGIA [None]
  - FEELING ABNORMAL [None]
  - PAIN IN EXTREMITY [None]
  - BONE PAIN [None]
  - COUGH [None]
  - GENERAL PHYSICAL HEALTH DETERIORATION [None]
  - BACK PAIN [None]
  - DEPRESSION [None]
  - FATIGUE [None]
  - FLUID RETENTION [None]
